FAERS Safety Report 7819904-2 (Version None)
Quarter: 2011Q4

REPORT INFORMATION
  Report Type: 
  Country: None (occurrence: None)
  Receive Date: 20111018
  Receipt Date: 20110216
  Transmission Date: 20120403
  Serious: No
  Sender: FDA-Public Use
  Company Number: US-ASTRAZENECA-2011SE00175

PATIENT
  Age: 79 Year
  Sex: Male
  Weight: 106.6 kg

DRUGS (7)
  1. NEURONTIN [Concomitant]
  2. SYMBICORT [Suspect]
     Dosage: 160/4.5 MCG
     Route: 055
  3. XANAX [Concomitant]
  4. ATENOLOL [Concomitant]
  5. FLOMAX [Concomitant]
  6. NEXIUM [Concomitant]
  7. HYZAAR [Concomitant]

REACTIONS (1)
  - DYSGEUSIA [None]
